FAERS Safety Report 8539180-5 (Version None)
Quarter: 2012Q3

REPORT INFORMATION
  Report Type: 
  Country: None (occurrence: None)
  Receive Date: 20120726
  Receipt Date: 20120718
  Transmission Date: 20120928
  Serious: Yes (Hospitalization)
  Sender: FDA-Public Use
  Company Number: JP-NOVOPROD-355919

PATIENT
  Age: 53 Year
  Sex: Female

DRUGS (3)
  1. NOVORAPID CHU FLEXPEN [Suspect]
     Indication: TYPE 1 DIABETES MELLITUS
     Dosage: UNK
     Route: 058
  2. LEVEMIR [Suspect]
     Indication: TYPE 1 DIABETES MELLITUS
     Dosage: UNK
     Route: 058
  3. LANTUS [Concomitant]
     Dosage: UNK
     Route: 058
     Dates: end: 20111001

REACTIONS (2)
  - HYPOGLYCAEMIA [None]
  - ANTI-INSULIN ANTIBODY POSITIVE [None]
